FAERS Safety Report 8829937 (Version 1)
Quarter: 2012Q4

REPORT INFORMATION
  Report Type: 
  Country: FR (occurrence: FR)
  Receive Date: 20121008
  Receipt Date: 20121008
  Transmission Date: 20130627
  Serious: Yes (Hospitalization)
  Sender: FDA-Public Use
  Company Number: PHHY2012FR087328

PATIENT
  Age: 83 Year
  Sex: Male

DRUGS (1)
  1. LESCOL [Suspect]
     Indication: HYPERCHOLESTEROLAEMIA
     Dosage: 80 mg, QD

REACTIONS (3)
  - Lung disorder [Unknown]
  - Dysphagia [Unknown]
  - Wrong technique in drug usage process [Unknown]
